FAERS Safety Report 13546658 (Version 1)
Quarter: 2017Q2

REPORT INFORMATION
  Report Type: Spontaneous
  Country: JP (occurrence: JP)
  Receive Date: 20170515
  Receipt Date: 20170515
  Transmission Date: 20170830
  Serious: Yes (Other)
  Sender: FDA-Public Use
  Company Number: JP-SA-2017SA085541

PATIENT

DRUGS (1)
  1. AMARYL [Suspect]
     Active Substance: GLIMEPIRIDE
     Route: 048

REACTIONS (2)
  - Pancytopenia [Unknown]
  - Haemolytic anaemia [Unknown]
